FAERS Safety Report 25767959 (Version 1)
Quarter: 2025Q3

REPORT INFORMATION
  Report Type: Spontaneous
  Country: US (occurrence: US)
  Receive Date: 20250905
  Receipt Date: 20250905
  Transmission Date: 20251020
  Serious: No
  Sender: DOMPE FARMACEUTICI
  Company Number: US-FARMAPROD-202505-1682

PATIENT
  Sex: Male

DRUGS (9)
  1. OXERVATE [Suspect]
     Active Substance: CENEGERMIN-BKBJ
     Indication: Neurotrophic keratopathy
     Route: 047
     Dates: start: 20250508
  2. ASPIRIN [Concomitant]
     Active Substance: ASPIRIN
  3. LOSARTAN POTASSIUM [Concomitant]
     Active Substance: LOSARTAN POTASSIUM
  4. ATORVASTATIN CALCIUM [Concomitant]
     Active Substance: ATORVASTATIN CALCIUM
  5. GLUCOSAMINE + CHONDROITIN + D3 [CHONDROITIN SULFATE SODIUM;GLUCOSAMINE [Concomitant]
  6. VITAMINS [Concomitant]
     Active Substance: VITAMINS
  7. REFRESH TEARS [Concomitant]
     Active Substance: CARBOXYMETHYLCELLULOSE SODIUM
  8. MURO 128 [Concomitant]
     Active Substance: SODIUM CHLORIDE
  9. PREVAGEN SUPPLEMENT [Concomitant]

REACTIONS (10)
  - Vision blurred [Not Recovered/Not Resolved]
  - Photophobia [Not Recovered/Not Resolved]
  - Wrong technique in product usage process [Unknown]
  - Eyelid margin crusting [Unknown]
  - Headache [Unknown]
  - Abdominal discomfort [Unknown]
  - Eye pain [Unknown]
  - Ocular discomfort [Unknown]
  - Swelling of eyelid [Unknown]
  - Lacrimation increased [Unknown]
